FAERS Safety Report 5839075-1 (Version None)
Quarter: 2008Q3

REPORT INFORMATION
  Report Type: 
  Country: None (occurrence: None)
  Receive Date: 20080808
  Receipt Date: 20080731
  Transmission Date: 20090109
  Serious: Yes (Other)
  Sender: FDA-Public Use
  Company Number: US-PFIZER INC-2006113707

PATIENT
  Sex: Male
  Weight: 78.9 kg

DRUGS (2)
  1. CADUET [Suspect]
     Indication: HYPERTENSION
     Dosage: TEXT:10/20MG-FREQ:DAILY
  2. CADUET [Suspect]
     Indication: BLOOD CHOLESTEROL INCREASED

REACTIONS (5)
  - BREAST ENLARGEMENT [None]
  - BREAST PAIN [None]
  - HYPOGONADISM [None]
  - NIPPLE PAIN [None]
  - SWELLING [None]
